FAERS Safety Report 21985756 (Version 1)
Quarter: 2023Q1

REPORT INFORMATION
  Report Type: Spontaneous
  Country: CA (occurrence: CA)
  Receive Date: 20230213
  Receipt Date: 20230213
  Transmission Date: 20230418
  Serious: Yes (Hospitalization, Other)
  Sender: FDA-Public Use
  Company Number: CA-BRACCO-2023CA00589

PATIENT
  Age: 42 Year
  Sex: Female

DRUGS (2)
  1. ISOVUE 370 [Suspect]
     Active Substance: IOPAMIDOL
     Indication: Computerised tomogram
     Dosage: UNK
  2. IRON [Concomitant]
     Active Substance: IRON

REACTIONS (1)
  - Thrombocytopenia [Recovered/Resolved]
